FAERS Safety Report 7859929-4 (Version None)
Quarter: 2011Q4

REPORT INFORMATION
  Report Type: 
  Country: None (occurrence: None)
  Receive Date: 20111025
  Receipt Date: 20111014
  Transmission Date: 20120403
  Serious: Yes (Hospitalization, Other)
  Sender: FDA-Public Use
  Company Number: AUR-APL-2011-05393

PATIENT
  Age: 76 Year
  Sex: Female

DRUGS (5)
  1. MIRTAZAPINE [Concomitant]
  2. IBUPROFEN [Concomitant]
  3. ESCITALOPRAM [Concomitant]
  4. SIMVASTATIN [Concomitant]
  5. METFORMIN HCL [Suspect]
     Indication: PRODUCT USED FOR UNKNOWN INDICATION
     Dosage: 2550 MG (850,1 IN 8 HR)

REACTIONS (13)
  - BLOOD POTASSIUM DECREASED [None]
  - ABDOMINAL PAIN [None]
  - NAUSEA [None]
  - DIARRHOEA [None]
  - DRY SKIN [None]
  - HAEMOGLOBIN DECREASED [None]
  - BLOOD SODIUM DECREASED [None]
  - VOMITING [None]
  - BLADDER NEOPLASM [None]
  - DECREASED APPETITE [None]
  - BLOOD GLUCOSE INCREASED [None]
  - LACTIC ACIDOSIS [None]
  - HAEMODYNAMIC INSTABILITY [None]
